FAERS Safety Report 10078369 (Version 2)
Quarter: 2014Q2

REPORT INFORMATION
  Report Type: Spontaneous
  Country: US (occurrence: None)
  Receive Date: 20140327
  Receipt Date: 20140428
  Transmission Date: 20141212
  Serious: Yes (Hospitalization, Other)
  Sender: FDA-Public Use
  Company Number: SYM-2013-13383

PATIENT
  Age: 47 Year
  Sex: Female

DRUGS (1)
  1. XENAZINE (TETRABENAZINE) (25 MILLIGRAM, TABLET) (TETRABENAZINE) [Suspect]
     Indication: HUNTINGTON^S DISEASE
     Route: 048
     Dates: start: 20131029

REACTIONS (9)
  - Pancreatitis [None]
  - Renal disorder [None]
  - Weight decreased [None]
  - White blood cell count decreased [None]
  - Decreased appetite [None]
  - Mood altered [None]
  - Aggression [None]
  - Agitation [None]
  - Dyskinesia [None]
